FAERS Safety Report 6573122-7 (Version None)
Quarter: 2010Q1

REPORT INFORMATION
  Report Type: 
  Country: None (occurrence: None)
  Receive Date: 20100208
  Receipt Date: 20100126
  Transmission Date: 20100710
  Serious: Yes (Hospitalization)
  Sender: FDA-Public Use
  Company Number: US-JNJFOC-20100111849

PATIENT
  Age: 60 Year
  Sex: Female
  Weight: 74.84 kg

DRUGS (2)
  1. TYLENOL WARMING COLD MULTI-SYMPTOM NIGHTTIME HONEY LEMON [Suspect]
     Indication: NASOPHARYNGITIS
  2. TYLENOL WARMING COLD MULTI-SYMPTOM NIGHTTIME HONEY LEMON [Suspect]
     Indication: COUGH

REACTIONS (4)
  - CHEST DISCOMFORT [None]
  - DIZZINESS [None]
  - DYSPNOEA [None]
  - HEART RATE INCREASED [None]
